FAERS Safety Report 4637844-7 (Version None)
Quarter: 2005Q2

REPORT INFORMATION
  Report Type: 
  Country: None (occurrence: None)
  Receive Date: 20050328
  Receipt Date: 20050204
  Transmission Date: 20051028
  Serious: No
  Sender: FDA-Public Use
  Company Number: USA050290042

PATIENT
  Age: 16 Year
  Sex: Male
  Weight: 32 kg

DRUGS (3)
  1. STRATTERA [Suspect]
     Dosage: 60 MG DAY
  2. RISPERDAL [Concomitant]
  3. CLONIDINE [Concomitant]

REACTIONS (2)
  - DRUG EFFECT DECREASED [None]
  - PRESCRIBED OVERDOSE [None]
